FAERS Safety Report 25911947 (Version 1)
Quarter: 2025Q4

REPORT INFORMATION
  Report Type: Spontaneous
  Country: US (occurrence: US)
  Receive Date: 20251013
  Receipt Date: 20251013
  Transmission Date: 20260117
  Serious: No
  Sender: RANBAXY
  Company Number: US-SUN PHARMACEUTICAL INDUSTRIES LTD-2025R1-492524

PATIENT
  Sex: Female
  Weight: 63.5 kg

DRUGS (4)
  1. WINLEVI [Suspect]
     Active Substance: CLASCOTERONE
     Indication: Acne
     Dosage: UNK, BID
     Route: 061
     Dates: start: 2022
  2. WINLEVI [Suspect]
     Active Substance: CLASCOTERONE
     Dosage: UNK, OD
     Route: 061
  3. EPIDUO [Concomitant]
     Active Substance: ADAPALENE\BENZOYL PEROXIDE
     Indication: Acne
     Dosage: UNK
     Route: 065
  4. UNSPECIFIED INGREDIENT [Concomitant]
     Active Substance: UNSPECIFIED INGREDIENT
     Indication: Product used for unknown indication
     Dosage: UNK
     Route: 065

REACTIONS (3)
  - Hordeolum [Unknown]
  - Meibomian gland dysfunction [Unknown]
  - Amenorrhoea [Unknown]
